FAERS Safety Report 4874471-0 (Version None)
Quarter: 2006Q1

REPORT INFORMATION
  Report Type: 
  Country: None (occurrence: None)
  Receive Date: 20060106
  Receipt Date: 20051228
  Transmission Date: 20060701
  Serious: Yes (Hospitalization)
  Sender: FDA-Public Use
  Company Number: FR-ROCHE-429990

PATIENT
  Age: 76 Year
  Sex: Male
  Weight: 79 kg

DRUGS (14)
  1. RIVOTRIL [Suspect]
     Indication: DRUG USE FOR UNKNOWN INDICATION
     Route: 048
     Dates: start: 20050622, end: 20050712
  2. AVODART [Suspect]
     Indication: DRUG USE FOR UNKNOWN INDICATION
     Route: 048
     Dates: start: 20050708, end: 20050712
  3. CARDENSIEL [Suspect]
     Indication: DRUG USE FOR UNKNOWN INDICATION
     Route: 048
     Dates: start: 20050622, end: 20050712
  4. RISPERDAL [Suspect]
     Indication: DRUG USE FOR UNKNOWN INDICATION
     Route: 048
     Dates: start: 20050622, end: 20050712
  5. VIVALAN [Suspect]
     Indication: DRUG USE FOR UNKNOWN INDICATION
     Route: 048
     Dates: start: 20050622, end: 20050712
  6. DUPHALAC [Concomitant]
     Indication: DRUG USE FOR UNKNOWN INDICATION
  7. ARANESP [Concomitant]
  8. IMOVANE [Concomitant]
  9. ZYLORIC 100 [Concomitant]
  10. LASILIX 40 [Concomitant]
  11. LODALES [Concomitant]
  12. KARDEGIC [Concomitant]
  13. OMIX [Concomitant]
  14. TRIFLUCAN [Concomitant]

REACTIONS (2)
  - EPILEPSY [None]
  - HYPONATRAEMIA [None]
